FAERS Safety Report 5090940-5 (Version None)
Quarter: 2006Q3

REPORT INFORMATION
  Report Type: 
  Country: None (occurrence: None)
  Receive Date: 20060823
  Receipt Date: 20060808
  Transmission Date: 20061208
  Serious: Yes (Death)
  Sender: FDA-Public Use
  Company Number: PHBS2006US11826

PATIENT
  Age: 57 Year
  Sex: Female

DRUGS (3)
  1. TIZANIDINE HCL [Suspect]
     Indication: MUSCLE SPASTICITY
  2. DIAZEPAM [Suspect]
  3. ETHANOL     (ETHANOL) [Suspect]

REACTIONS (3)
  - ALCOHOL POISONING [None]
  - COMPLETED SUICIDE [None]
  - DRUG TOXICITY [None]
